FAERS Safety Report 6663518-7 (Version None)
Quarter: 2010Q1

REPORT INFORMATION
  Report Type: 
  Country: None (occurrence: None)
  Receive Date: 20100331
  Receipt Date: 20100331
  Transmission Date: 20100710
  Serious: Yes (Hospitalization)
  Sender: FDA-Public Use
  Company Number: None

PATIENT
  Age: 74 Year
  Sex: Female
  Weight: 69.9 kg

DRUGS (1)
  1. WARFARIN SODIUM [Suspect]
     Indication: CORONARY ARTERY DISEASE
     Dosage: 5MG DAILY PO
     Route: 048
     Dates: start: 20050101, end: 20100328

REACTIONS (3)
  - EAR HAEMORRHAGE [None]
  - EPISTAXIS [None]
  - EYE HAEMORRHAGE [None]
